FAERS Safety Report 5761440-1 (Version None)
Quarter: 2008Q2

REPORT INFORMATION
  Report Type: 
  Country: None (occurrence: None)
  Receive Date: 20080606
  Receipt Date: 20080526
  Transmission Date: 20081010
  Serious: Yes (Other)
  Sender: FDA-Public Use
  Company Number: US-ROCHE-568507

PATIENT
  Weight: 2.2 kg

DRUGS (4)
  1. PYRIMETHAMINE/SULFADOXINE [Suspect]
     Dosage: 3 TABLETS 4 WEEKS APART
     Route: 064
  2. PYRIMETHAMINE/SULFADOXINE [Suspect]
     Dosage: 3 TABLETS 4 WEEKS APART
     Route: 064
  3. FERROUS SULFATE TAB [Concomitant]
  4. FOLIC ACID [Concomitant]

REACTIONS (1)
  - DEATH NEONATAL [None]
